FAERS Safety Report 16445644 (Version 2)
Quarter: 2019Q3

REPORT INFORMATION
  Report Type: Spontaneous
  Country: FR (occurrence: FR)
  Receive Date: 20190618
  Receipt Date: 20190703
  Transmission Date: 20191004
  Serious: Yes (Hospitalization, Other)
  Sender: FDA-Public Use
  Company Number: FR-SEPTODONT-201905273

PATIENT
  Age: 6 Year
  Sex: Male
  Weight: 18 kg

DRUGS (3)
  1. XOGEL ENFANT, GEL GINGIVAL [Suspect]
     Active Substance: CETRIMIDE\LIDOCAINE
     Indication: LOCAL ANAESTHESIA
     Route: 002
     Dates: start: 20190603, end: 20190603
  2. KALINOX(OXYGEN, NITROUS OXIDE) [Suspect]
     Active Substance: NITROUS OXIDE\OXYGEN
     Indication: ANAESTHESIA
     Route: 055
     Dates: start: 20190603, end: 20190603
  3. SEPTANEST 40 MG/ML ADR?NALIN?E AU 1/200.000 [Suspect]
     Active Substance: ARTICAINE HYDROCHLORIDE\EPINEPHRINE BITARTRATE
     Indication: DENTAL LOCAL ANAESTHESIA
     Route: 004
     Dates: start: 20190603, end: 20190603

REACTIONS (5)
  - Altered state of consciousness [Recovered/Resolved]
  - Vomiting [Recovered/Resolved]
  - Tachycardia [Recovered/Resolved]
  - Drug interaction [Recovered/Resolved]
  - Seizure [Recovered/Resolved]

NARRATIVE: CASE EVENT DATE: 20190603
